FAERS Safety Report 15322766 (Version 1)
Quarter: 2018Q3

REPORT INFORMATION
  Report Type: Spontaneous
  Country: US (occurrence: US)
  Receive Date: 20180821
  Receipt Date: 20180821
  Transmission Date: 20181010
  Serious: Yes (Other)
  Sender: FDA-Public Use
  Company Number: None

PATIENT
  Age: 67 Year
  Sex: Female
  Weight: 58.97 kg

DRUGS (9)
  1. VITAMIN E [Concomitant]
     Active Substance: .ALPHA.-TOCOPHEROL
  2. OLMEZARTAN HCTZ [Concomitant]
  3. ROSAVASTATIN CA [Concomitant]
  4. GLIMPIRIDE [Concomitant]
     Active Substance: GLIMEPIRIDE
  5. VITAMIN D3 [Concomitant]
     Active Substance: CHOLECALCIFEROL
  6. CQ10 [Concomitant]
     Active Substance: UBIDECARENONE
  7. VALSARTAN AND HYDROCHLOROTHIAZIDE [Suspect]
     Active Substance: HYDROCHLOROTHIAZIDE\VALSARTAN
     Indication: HYPERTENSION
     Dosage: ?          QUANTITY:1 TAB;?
     Route: 048
     Dates: start: 20180420, end: 20180526
  8. VITAMIN B12 [Concomitant]
     Active Substance: CYANOCOBALAMIN
  9. LEVOTHYROXIN [Concomitant]
     Active Substance: LEVOTHYROXINE

REACTIONS (16)
  - Vomiting [None]
  - Pyrexia [None]
  - Hypophagia [None]
  - Pain [None]
  - Nasal congestion [None]
  - Dizziness [None]
  - Hypoaesthesia [None]
  - Unevaluable event [None]
  - Arthralgia [None]
  - Rash [None]
  - Oropharyngeal pain [None]
  - Wheezing [None]
  - Abdominal pain upper [None]
  - Diarrhoea [None]
  - Nausea [None]
  - Fatigue [None]

NARRATIVE: CASE EVENT DATE: 20180525
